FAERS Safety Report 7031181-1 (Version None)
Quarter: 2010Q4

REPORT INFORMATION
  Report Type: 
  Country: None (occurrence: None)
  Receive Date: 20101006
  Receipt Date: 20101004
  Transmission Date: 20110411
  Serious: Yes (Disabling)
  Sender: FDA-Public Use
  Company Number: A0878881A

PATIENT
  Age: 52 Year
  Sex: Female
  Weight: 76.4 kg

DRUGS (3)
  1. ALLI [Suspect]
     Indication: WEIGHT LOSS DIET
     Route: 048
     Dates: start: 20070301, end: 20100701
  2. CLARITIN [Concomitant]
     Indication: MULTIPLE ALLERGIES
     Route: 048
  3. MULTI-VITAMIN [Concomitant]
     Route: 048

REACTIONS (20)
  - ABDOMINAL PAIN [None]
  - ABDOMINAL PAIN UPPER [None]
  - ALANINE AMINOTRANSFERASE INCREASED [None]
  - ASPARTATE AMINOTRANSFERASE INCREASED [None]
  - BLOOD ALKALINE PHOSPHATASE [None]
  - BLOOD BILIRUBIN INCREASED [None]
  - BLOOD TRIGLYCERIDES INCREASED [None]
  - CHOLELITHIASIS [None]
  - HEPATIC STEATOSIS [None]
  - INTERNATIONAL NORMALISED RATIO DECREASED [None]
  - JAUNDICE [None]
  - LIVER INJURY [None]
  - MALAISE [None]
  - NAUSEA [None]
  - PROTEIN TOTAL INCREASED [None]
  - PYREXIA [None]
  - SCLERAL DISCOLOURATION [None]
  - SERUM FERRITIN INCREASED [None]
  - VOMITING [None]
  - YELLOW SKIN [None]
